FAERS Safety Report 4881316-1 (Version None)
Quarter: 2005Q4

REPORT INFORMATION
  Report Type: 
  Country: None (occurrence: None)
  Receive Date: 20051212
  Receipt Date: 20050908
  Transmission Date: 20060501
  Serious: Yes (Hospitalization)
  Sender: FDA-Public Use
  Company Number: 2005-01917

PATIENT
  Age: 61 Year
  Sex: Female
  Weight: 83.9 kg

DRUGS (3)
  1. VELCADE [Suspect]
     Indication: MULTIPLE MYELOMA
     Dosage: SEE IMAGE
     Route: 042
     Dates: start: 20050701, end: 20050805
  2. VELCADE [Suspect]
     Indication: MULTIPLE MYELOMA
     Dosage: SEE IMAGE
     Route: 042
     Dates: start: 20050606
  3. DEXAMETHASONE TAB [Concomitant]

REACTIONS (11)
  - ABDOMINAL PAIN [None]
  - BLADDER PROLAPSE [None]
  - CONSTIPATION [None]
  - DECREASED APPETITE [None]
  - FAECALOMA [None]
  - HYPOAESTHESIA [None]
  - NAUSEA [None]
  - UMBILICAL HERNIA [None]
  - VAGINAL LACERATION [None]
  - VOMITING [None]
  - WEIGHT DECREASED [None]
